FAERS Safety Report 20893840 (Version 1)
Quarter: 2022Q2

REPORT INFORMATION
  Report Type: Spontaneous
  Country: JP (occurrence: None)
  Receive Date: 20220531
  Receipt Date: 20220531
  Transmission Date: 20220721
  Serious: Yes (Life-Threatening, Other)
  Sender: FDA-Public Use
  Company Number: 2022A160079

PATIENT
  Age: 58 Year
  Sex: Female

DRUGS (4)
  1. DAPAGLIFLOZIN [Suspect]
     Active Substance: DAPAGLIFLOZIN
     Indication: Type 2 diabetes mellitus
     Dosage: AFTER BREAKFAST
     Route: 048
     Dates: start: 20200818, end: 20220419
  2. GLIMEPIRIDE [Concomitant]
     Active Substance: GLIMEPIRIDE
     Route: 048
  3. METFORMIN HYDROCHLORIDE\VILDAGLIPTIN [Concomitant]
     Active Substance: METFORMIN HYDROCHLORIDE\VILDAGLIPTIN
     Route: 048
  4. ZOLPIDEM TARTRATE [Concomitant]
     Active Substance: ZOLPIDEM TARTRATE
     Dosage: BEFORE BEDTIME, DOSE UNKNOWN
     Route: 048

REACTIONS (3)
  - Pyelonephritis [Recovering/Resolving]
  - Retroperitonitis [Unknown]
  - Vulvovaginitis [Recovering/Resolving]

NARRATIVE: CASE EVENT DATE: 20200901
